FAERS Safety Report 6178824-2 (Version None)
Quarter: 2009Q2

REPORT INFORMATION
  Report Type: 
  Country: None (occurrence: None)
  Receive Date: 20090504
  Receipt Date: 20090319
  Transmission Date: 20091009
  Serious: No
  Sender: FDA-Public Use
  Company Number: US-ALEXION-A200900226

PATIENT
  Sex: Male

DRUGS (4)
  1. SOLIRIS [Suspect]
     Indication: PAROXYSMAL NOCTURNAL HAEMOGLOBINURIA
     Dosage: 600 MG, QWK X4
     Route: 042
     Dates: start: 20080724
  2. SOLIRIS [Suspect]
     Dosage: 900 MG, Q2WK
     Route: 042
     Dates: start: 20080821, end: 20080918
  3. SOLIRIS [Suspect]
     Dosage: 900 MG, Q12D
     Route: 042
     Dates: start: 20080930
  4. SOLIRIS [Suspect]
     Dosage: 1200 MG, Q2WK
     Route: 042
     Dates: start: 20081107

REACTIONS (2)
  - ABDOMINAL PAIN [None]
  - URINE ABNORMALITY [None]
